FAERS Safety Report 18079982 (Version 1)
Quarter: 2020Q3

REPORT INFORMATION
  Report Type: Spontaneous
  Country: US (occurrence: US)
  Receive Date: 20200728
  Receipt Date: 20200728
  Transmission Date: 20201103
  Serious: No
  Sender: FDA-Public Use
  Company Number: None

PATIENT
  Age: 55 Year
  Sex: Female

DRUGS (1)
  1. CLOZAPINE. [Suspect]
     Active Substance: CLOZAPINE
     Dates: start: 20200105, end: 20200128

REACTIONS (3)
  - Sinus tachycardia [None]
  - Symptom recurrence [None]
  - Fatigue [None]

NARRATIVE: CASE EVENT DATE: 20200108
